FAERS Safety Report 11760091 (Version 1)
Quarter: 2015Q4

REPORT INFORMATION
  Report Type: Spontaneous
  Country: CN (occurrence: CN)
  Receive Date: 20151120
  Receipt Date: 20151120
  Transmission Date: 20160304
  Serious: Yes (Hospitalization)
  Sender: FDA-Public Use
  Company Number: CN-CORCEPT THERAPEUTICS INC.-CN-2015CRT000745

PATIENT
  Age: 33 Year
  Sex: Female

DRUGS (2)
  1. RIVANOL [Suspect]
     Active Substance: ETHACRIDINE LACTATE
     Indication: ABORTION INDUCED
     Dosage: 100 MG AT 9 AM ON THE SECOND DAY
     Route: 012
  2. MIFEPRISTONE [Suspect]
     Active Substance: MIFEPRISTONE
     Indication: ABORTION INDUCED
     Dosage: 50 MG, BID
     Route: 048

REACTIONS (2)
  - Abdominal pain lower [Recovered/Resolved]
  - Uterine rupture [Recovered/Resolved]
